FAERS Safety Report 12987515 (Version 1)
Quarter: 2016Q4

REPORT INFORMATION
  Report Type: Report from Study
  Country: BR (occurrence: BR)
  Receive Date: 20161130
  Receipt Date: 20161130
  Transmission Date: 20170207
  Serious: Yes (Hospitalization)
  Sender: FDA-Public Use
  Company Number: BR-BAYER-2016-225301

PATIENT
  Age: 31 Year
  Sex: Female

DRUGS (2)
  1. BETAFERON [Suspect]
     Active Substance: INTERFERON BETA-1B
     Indication: MULTIPLE SCLEROSIS
     Dosage: 1 ML, QOD
     Dates: start: 2005
  2. BENICAR [Concomitant]
     Active Substance: OLMESARTAN MEDOXOMIL
     Indication: HYPERTENSION
     Dosage: 20 MG, QD
     Route: 048
     Dates: start: 2010

REACTIONS (12)
  - Injection site erythema [Not Recovered/Not Resolved]
  - Feeling cold [Recovering/Resolving]
  - Chills [Recovering/Resolving]
  - Injection site nodule [Not Recovered/Not Resolved]
  - Fall [Recovered/Resolved]
  - Pyrexia [Recovering/Resolving]
  - Injection site pain [Not Recovered/Not Resolved]
  - Hysterectomy [Recovered/Resolved]
  - Malaise [Recovering/Resolving]
  - Confusional state [Recovered/Resolved]
  - Injection site haemorrhage [Not Recovered/Not Resolved]
  - Tremor [Recovering/Resolving]

NARRATIVE: CASE EVENT DATE: 2005
